FAERS Safety Report 22024428 (Version 1)
Quarter: 2023Q1

REPORT INFORMATION
  Report Type: Spontaneous
  Country: US (occurrence: None)
  Receive Date: 20230223
  Receipt Date: 20230223
  Transmission Date: 20230418
  Serious: No
  Sender: FDA-Public Use
  Company Number: US-ROCHE-3040553

PATIENT
  Age: 59 Year
  Sex: Female

DRUGS (2)
  1. XOLAIR [Suspect]
     Active Substance: OMALIZUMAB
     Indication: Idiopathic urticaria
     Dosage: ON HOLD
     Route: 058
     Dates: start: 20220223
  2. XOLAIR [Suspect]
     Active Substance: OMALIZUMAB

REACTIONS (8)
  - Throat irritation [Unknown]
  - Ill-defined disorder [Unknown]
  - Arthralgia [Unknown]
  - Back pain [Unknown]
  - Fatigue [Unknown]
  - Nasopharyngitis [Unknown]
  - Asthenia [Unknown]
  - Myalgia [Unknown]

NARRATIVE: CASE EVENT DATE: 20220223
